FAERS Safety Report 18373289 (Version 1)
Quarter: 2020Q4

REPORT INFORMATION
  Report Type: Spontaneous
  Country: US (occurrence: US)
  Receive Date: 20201012
  Receipt Date: 20201012
  Transmission Date: 20210114
  Serious: No
  Sender: FDA-Public Use
  Company Number: US-JUBILANT CADISTA PHARMACEUTICALS-2020JUB00207

PATIENT
  Age: 10 Year
  Sex: Male
  Weight: 33.11 kg

DRUGS (1)
  1. PREDNISONE. [Suspect]
     Active Substance: PREDNISONE
     Indication: DERMATITIS CONTACT
     Dosage: 60 MG, ONCE
     Route: 048
     Dates: start: 20200607, end: 20200607

REACTIONS (3)
  - Hypersensitivity [Recovering/Resolving]
  - Oropharyngeal pain [Recovering/Resolving]
  - Reaction to excipient [Recovering/Resolving]

NARRATIVE: CASE EVENT DATE: 20200607
